FAERS Safety Report 16323136 (Version 2)
Quarter: 2019Q2

REPORT INFORMATION
  Report Type: Spontaneous
  Country: US (occurrence: US)
  Receive Date: 20190517
  Receipt Date: 20190611
  Transmission Date: 20190711
  Serious: No
  Sender: FDA-Public Use
  Company Number: US-LUPIN PHARMACEUTICALS INC.-2019-02410

PATIENT
  Age: 11 Year
  Sex: Male
  Weight: 31.75 kg

DRUGS (1)
  1. OSELTAMIVIR PHOSPHATE FOR ORAL SUSPENSION, 6 MG/ML [Suspect]
     Active Substance: OSELTAMIVIR PHOSPHATE
     Indication: INFLUENZA
     Dosage: 6 MILLIGRAM PER MILLILITRE, QD
     Route: 048
     Dates: start: 20190329, end: 20190329

REACTIONS (5)
  - Pyrexia [Recovered/Resolved]
  - Hallucination [Recovered/Resolved]
  - Memory impairment [Recovered/Resolved]
  - Abnormal behaviour [Recovered/Resolved]
  - Delusion [Recovered/Resolved]

NARRATIVE: CASE EVENT DATE: 20190329
